FAERS Safety Report 16266000 (Version 1)
Quarter: 2019Q2

REPORT INFORMATION
  Report Type: Spontaneous
  Country: US (occurrence: US)
  Receive Date: 20190502
  Receipt Date: 20190502
  Transmission Date: 20190711
  Serious: No
  Sender: FDA-Public Use
  Company Number: US-ASTRAZENECA-2019SE53591

PATIENT
  Sex: Female
  Weight: 113.4 kg

DRUGS (3)
  1. PULMICORT FLEXHALER [Suspect]
     Active Substance: BUDESONIDE
     Indication: ASTHMA
     Route: 055
  2. FASENRA [Suspect]
     Active Substance: BENRALIZUMAB
     Indication: ASTHMA
     Dosage: 30 MG ONCE A MONTH FOR 3 TIMES AND THEN EVERY 8 WEEKS
     Route: 058
     Dates: start: 20190326
  3. FASENRA [Suspect]
     Active Substance: BENRALIZUMAB
     Indication: WHITE BLOOD CELL COUNT ABNORMAL
     Dosage: 30 MG ONCE A MONTH FOR 3 TIMES AND THEN EVERY 8 WEEKS
     Route: 058
     Dates: start: 20190326

REACTIONS (6)
  - Myalgia [Unknown]
  - White blood cell disorder [Unknown]
  - Feeling abnormal [Unknown]
  - Respiration abnormal [Unknown]
  - Muscle strain [Unknown]
  - Neck pain [Unknown]
